FAERS Safety Report 8303402-6 (Version None)
Quarter: 2012Q2

REPORT INFORMATION
  Report Type: 
  Country: None (occurrence: None)
  Receive Date: 20120423
  Receipt Date: 20120417
  Transmission Date: 20120825
  Serious: No
  Sender: FDA-Public Use
  Company Number: US-B.I. PHARMACEUTICALS,INC./RIDGEFIELD-2012-BP-07268BP

PATIENT
  Sex: Female

DRUGS (5)
  1. FISH OIL [Concomitant]
  2. ZANTAC [Suspect]
     Indication: GASTROOESOPHAGEAL REFLUX DISEASE
     Dosage: 75 MG
     Route: 048
     Dates: start: 20120101, end: 20120412
  3. ZANTAC [Suspect]
     Dosage: 75 MG
     Route: 048
     Dates: start: 20120416
  4. VITAMIN TAB [Concomitant]
  5. CALCIUM [Concomitant]

REACTIONS (3)
  - MUSCLE SPASMS [None]
  - INFLUENZA [None]
  - INTENTIONAL DRUG MISUSE [None]
